FAERS Safety Report 9895846 (Version 3)
Quarter: 2014Q4

REPORT INFORMATION
  Report Type: Spontaneous
  Country: US (occurrence: US)
  Receive Date: 20140213
  Receipt Date: 20141205
  Transmission Date: 20150529
  Serious: No
  Sender: FDA-Public Use
  Company Number: US-BRISTOL-MYERS SQUIBB COMPANY-17248352

PATIENT
  Age: 59 Year
  Sex: Female
  Weight: 52.15 kg

DRUGS (2)
  1. METHOTREXATE [Concomitant]
     Active Substance: METHOTREXATE
     Dates: end: 201308
  2. ORENCIA [Suspect]
     Active Substance: ABATACEPT
     Indication: RHEUMATOID ARTHRITIS
     Dosage: DATE OF LAST INFUSION: 26DEC2012?ALSO TAKEN IN 750MG DOSE FORM UNK DATE.?LAST DOSE:05MAY14
     Route: 042
     Dates: start: 2013

REACTIONS (7)
  - Abscess [Unknown]
  - Pain [Unknown]
  - Cough [Unknown]
  - Upper respiratory tract infection [Unknown]
  - Infection [Unknown]
  - Headache [Unknown]
  - Onychoclasis [Not Recovered/Not Resolved]

NARRATIVE: CASE EVENT DATE: 2012
